FAERS Safety Report 6789680-3 (Version None)
Quarter: 2010Q2

REPORT INFORMATION
  Report Type: 
  Country: None (occurrence: None)
  Receive Date: 20100624
  Receipt Date: 20100611
  Transmission Date: 20101027
  Serious: Yes (Other)
  Sender: FDA-Public Use
  Company Number: US-RB-011993-10

PATIENT
  Age: 65 Year
  Sex: Female

DRUGS (2)
  1. MUCINEX D [Suspect]
     Dosage: HALF OF TABLET TAKEN ORALLY
     Route: 048
     Dates: start: 20100611
  2. AMOXICILLIN [Concomitant]

REACTIONS (4)
  - AGITATION [None]
  - DRY MOUTH [None]
  - HEART RATE INCREASED [None]
  - WRONG TECHNIQUE IN DRUG USAGE PROCESS [None]
